FAERS Safety Report 20104655 (Version 1)
Quarter: 2021Q4

REPORT INFORMATION
  Report Type: Spontaneous
  Country: None (occurrence: FR)
  Receive Date: 20211123
  Receipt Date: 20211123
  Transmission Date: 20220304
  Serious: Yes (Life-Threatening, Other)
  Sender: FDA-Public Use
  Company Number: FR-Ascend Therapeutics US, LLC-2122248

PATIENT
  Sex: Female

DRUGS (14)
  1. ESTROGEL [Suspect]
     Active Substance: ESTRADIOL
     Indication: Acne
     Route: 003
     Dates: start: 2011, end: 201509
  2. ESTROGEL [Suspect]
     Active Substance: ESTRADIOL
  3. ESTRADIOL HEMIHYDRATE [Suspect]
     Active Substance: ESTRADIOL HEMIHYDRATE
     Route: 003
     Dates: start: 2011, end: 201509
  4. ESTRADIOL HEMIHYDRATE [Suspect]
     Active Substance: ESTRADIOL HEMIHYDRATE
     Route: 003
     Dates: start: 20150927, end: 20151028
  5. CYPROTERONE ACETATE [Suspect]
     Active Substance: CYPROTERONE ACETATE
     Route: 048
     Dates: start: 1999, end: 200605
  6. CYPROTERONE ACETATE [Suspect]
     Active Substance: CYPROTERONE ACETATE
     Route: 048
     Dates: start: 20111229, end: 201202
  7. CYPROTERONE ACETATE [Suspect]
     Active Substance: CYPROTERONE ACETATE
     Route: 048
     Dates: start: 20120521, end: 201206
  8. CYPROTERONE ACETATE [Suspect]
     Active Substance: CYPROTERONE ACETATE
     Route: 048
     Dates: start: 20150927, end: 20151028
  9. CYPROTERONE ACETATE [Suspect]
     Active Substance: CYPROTERONE ACETATE
     Route: 048
     Dates: start: 20120204, end: 20120503
  10. CYPROTERONE ACETATE [Suspect]
     Active Substance: CYPROTERONE ACETATE
     Route: 048
     Dates: start: 20120630, end: 20130309
  11. CYPROTERONE ACETATE [Suspect]
     Active Substance: CYPROTERONE ACETATE
     Route: 048
     Dates: start: 20130404, end: 20130708
  12. CYPROTERONE ACETATE [Suspect]
     Active Substance: CYPROTERONE ACETATE
     Route: 048
     Dates: start: 20060503, end: 20111201
  13. CYPROTERONE ACETATE [Suspect]
     Active Substance: CYPROTERONE ACETATE
     Route: 048
     Dates: start: 20130905, end: 20150418
  14. CYPROTERONE ACETATE [Suspect]
     Active Substance: CYPROTERONE ACETATE
     Route: 048
     Dates: start: 20150418, end: 20150925

REACTIONS (4)
  - Anaplastic meningioma [Recovering/Resolving]
  - Vision blurred [Recovering/Resolving]
  - Headache [Recovering/Resolving]
  - Product use in unapproved indication [None]

NARRATIVE: CASE EVENT DATE: 20110101
